FAERS Safety Report 4806137-7 (Version None)
Quarter: 2005Q4

REPORT INFORMATION
  Report Type: 
  Country: None (occurrence: None)
  Receive Date: 20051019
  Receipt Date: 20051019
  Transmission Date: 20060501
  Serious: Yes (Hospitalization)
  Sender: FDA-Public Use
  Company Number: None

PATIENT
  Age: 61 Year
  Sex: Male
  Weight: 92.2 kg

DRUGS (7)
  1. OSTEO-BI-FLEX REXALL SUNDOWN [Suspect]
     Indication: ARTHRITIS
     Dosage: DAILY PO
     Route: 048
     Dates: start: 20050718, end: 20050726
  2. ASCORBIC ACID [Concomitant]
  3. MANGANESE SULFATE [Concomitant]
  4. SODIUM [Concomitant]
  5. GLUCOSAMINE [Concomitant]
  6. CHONDROITIN [Concomitant]
  7. BORON-SODIUM TETRABORATE [Concomitant]

REACTIONS (9)
  - BLOOD POTASSIUM DECREASED [None]
  - COXSACKIE VIRUS SEROLOGY TEST [None]
  - HAEMOGLOBIN DECREASED [None]
  - HEPATIC ENZYME INCREASED [None]
  - MOUTH ULCERATION [None]
  - Q FEVER [None]
  - STEVENS-JOHNSON SYNDROME [None]
  - THROMBOCYTOPENIA [None]
  - TREATMENT NONCOMPLIANCE [None]
